FAERS Safety Report 16334953 (Version 4)
Quarter: 2019Q3

REPORT INFORMATION
  Report Type: Report from Study
  Country: None (occurrence: ES)
  Receive Date: 20190520
  Receipt Date: 20190702
  Transmission Date: 20191004
  Serious: Yes (Hospitalization)
  Sender: FDA-Public Use
  Company Number: ES-ABBVIE-19P-144-2784160-00

PATIENT
  Age: 68 Year
  Sex: Female

DRUGS (3)
  1. CLAVERSAL [Concomitant]
     Active Substance: MESALAMINE
     Route: 048
     Dates: start: 20161109
  2. HUMIRA [Suspect]
     Active Substance: ADALIMUMAB
     Indication: COLITIS ULCERATIVE
     Route: 058
     Dates: start: 20150304, end: 201612
  3. CLAVERSAL [Concomitant]
     Active Substance: MESALAMINE
     Indication: COLITIS ULCERATIVE
     Route: 048
     Dates: start: 1999, end: 20161108

REACTIONS (1)
  - Wound [Recovered/Resolved]

NARRATIVE: CASE EVENT DATE: 20190502
